FAERS Safety Report 7945502-6 (Version None)
Quarter: 2011Q4

REPORT INFORMATION
  Report Type: 
  Country: None (occurrence: None)
  Receive Date: 20111129
  Receipt Date: 20111126
  Transmission Date: 20120403
  Serious: Yes (Other)
  Sender: FDA-Public Use
  Company Number: IT-PFIZER INC-2011278238

PATIENT
  Age: 85 Year
  Sex: Male

DRUGS (2)
  1. CARDURA [Suspect]
     Dosage: ONE UNIT DOSAGE DAILY
     Route: 048
     Dates: start: 20100808, end: 20110807
  2. ASPIRIN [Concomitant]
     Dosage: 1 DF, UNK

REACTIONS (2)
  - BLOOD PRESSURE INCREASED [None]
  - SYNCOPE [None]
